FAERS Safety Report 5469179-7 (Version None)
Quarter: 2007Q3

REPORT INFORMATION
  Report Type: 
  Country: None (occurrence: None)
  Receive Date: 20070927
  Receipt Date: 20070918
  Transmission Date: 20080115
  Serious: Yes (Other)
  Sender: FDA-Public Use
  Company Number: US-JNJFOC-20070904085

PATIENT
  Sex: Female

DRUGS (4)
  1. TYLENOL (CAPLET) [Suspect]
     Indication: GINGIVAL PAIN
  2. TYLENOL (CAPLET) [Suspect]
     Indication: RHINORRHOEA
     Dosage: DOSE UNKNOWN EVERY 6 HOURS
  3. CONCENTRATED MOTRIN INFANTS [Suspect]
     Indication: GINGIVAL PAIN
     Route: 048
  4. CONCENTRATED MOTRIN INFANTS [Suspect]
     Indication: RHINORRHOEA
     Route: 048

REACTIONS (1)
  - DYSKINESIA [None]
